FAERS Safety Report 19068633 (Version 1)
Quarter: 2021Q1

REPORT INFORMATION
  Report Type: Spontaneous
  Country: US (occurrence: US)
  Receive Date: 20210329
  Receipt Date: 20210329
  Transmission Date: 20210420
  Serious: No
  Sender: FDA-Public Use
  Company Number: US-MYLANLABS-2021M1016144

PATIENT

DRUGS (1)
  1. ESTRADIOL. [Suspect]
     Active Substance: ESTRADIOL
     Indication: PRODUCT USED FOR UNKNOWN INDICATION
     Dosage: 0.0375 MILLIGRAM, QD
     Route: 062

REACTIONS (4)
  - Product adhesion issue [Unknown]
  - Product quality issue [Unknown]
  - Product design issue [Unknown]
  - Drug ineffective [Unknown]
